FAERS Safety Report 10090553 (Version 4)
Quarter: 2014Q3

REPORT INFORMATION
  Report Type: Report from Study
  Country: US (occurrence: US)
  Receive Date: 20140421
  Receipt Date: 20140911
  Transmission Date: 20150326
  Serious: Yes (Hospitalization)
  Sender: FDA-Public Use
  Company Number: PHEH2014US005724

PATIENT
  Sex: Female

DRUGS (3)
  1. DIOVAN [Suspect]
     Active Substance: VALSARTAN
     Dosage: 160 MG, UNK
     Route: 048
  2. VALSARTAN. [Suspect]
     Active Substance: VALSARTAN
     Dosage: UNK UKN, UNK
  3. LOSARTAN [Suspect]
     Active Substance: LOSARTAN
     Dosage: 50 MG, UNK

REACTIONS (4)
  - Pain in jaw [Unknown]
  - Malaise [Unknown]
  - Hypertension [Unknown]
  - Pain [Unknown]
